FAERS Safety Report 12503117 (Version 1)
Quarter: 2016Q2

REPORT INFORMATION
  Report Type: Spontaneous
  Country: US (occurrence: None)
  Receive Date: 20160627
  Receipt Date: 20160627
  Transmission Date: 20160815
  Serious: Yes (Hospitalization, Disabling)
  Sender: FDA-Public Use
  Company Number: None

PATIENT
  Age: 20 Year
  Sex: Male
  Weight: 131.54 kg

DRUGS (2)
  1. DIVALPROEX SODIUM. [Suspect]
     Active Substance: DIVALPROEX SODIUM
     Indication: CONVULSION PROPHYLAXIS
     Route: 048
     Dates: start: 20150608, end: 20151111
  2. LORAZEPAM. [Concomitant]
     Active Substance: LORAZEPAM

REACTIONS (11)
  - Therapy cessation [None]
  - Seizure [None]
  - Muscle twitching [None]
  - Drug prescribing error [None]
  - Muscle contractions involuntary [None]
  - Panic attack [None]
  - Weight increased [None]
  - Family stress [None]
  - Somnolence [None]
  - Depression [None]
  - Condition aggravated [None]

NARRATIVE: CASE EVENT DATE: 20151130
